FAERS Safety Report 5148243-6 (Version None)
Quarter: 2006Q4

REPORT INFORMATION
  Report Type: 
  Country: None (occurrence: None)
  Receive Date: 20060918
  Receipt Date: 20060224
  Transmission Date: 20070319
  Serious: Yes (Other)
  Sender: FDA-Public Use
  Company Number: US-JNJFOC-20060206035

PATIENT
  Age: 37 Year
  Sex: Female
  Weight: 57.6068 kg

DRUGS (5)
  1. TOPAMAX [Suspect]
     Indication: BIPOLAR DISORDER
     Dosage: 200 MG, 2 IN 1 DAY, ORAL
     Route: 048
     Dates: start: 20040201, end: 20060220
  2. CYMBALTA [Concomitant]
  3. LAMICTAL [Concomitant]
  4. XANAX [Concomitant]
  5. TRAZODONE HCL [Concomitant]

REACTIONS (6)
  - ANGER [None]
  - CONFUSIONAL STATE [None]
  - DEPRESSION [None]
  - IRRITABILITY [None]
  - NIGHT SWEATS [None]
  - SUICIDAL IDEATION [None]
